FAERS Safety Report 9455275 (Version 4)
Quarter: 2013Q4

REPORT INFORMATION
  Report Type: Spontaneous
  Country: RU (occurrence: RU)
  Receive Date: 20130813
  Receipt Date: 20131007
  Transmission Date: 20140711
  Serious: Yes (Hospitalization, Other)
  Sender: FDA-Public Use
  Company Number: RU-RANBAXY-2013RR-72071

PATIENT
  Age: 75 Year
  Sex: Male

DRUGS (7)
  1. ENALAPRIL [Suspect]
     Indication: CARDIAC FAILURE
     Dosage: 20 MG/DAY
     Route: 065
     Dates: start: 201210
  2. SPIRONOLACTONE [Interacting]
     Indication: CARDIAC FAILURE
     Dosage: 50 MG/DAY
     Route: 065
     Dates: start: 201210
  3. PRADAXA [Suspect]
     Indication: CARDIAC FAILURE
     Dosage: 220 MG/DAY
     Route: 065
     Dates: start: 201210
  4. AMLODIPINE [Concomitant]
     Indication: PRODUCT USED FOR UNKNOWN INDICATION
     Dosage: 2.5 MG/DAY
     Route: 065
  5. FUROSEMIDE [Concomitant]
     Indication: PRODUCT USED FOR UNKNOWN INDICATION
     Dosage: 80 MG/DAY
     Route: 065
  6. ATORVASTATIN [Concomitant]
     Indication: PRODUCT USED FOR UNKNOWN INDICATION
     Dosage: 20 MG/DAY
     Route: 065
  7. DIABETON [Concomitant]
     Indication: PRODUCT USED FOR UNKNOWN INDICATION
     Dosage: 30 MG/DAY
     Route: 065

REACTIONS (3)
  - Renal failure [Recovering/Resolving]
  - Haemorrhage [Recovering/Resolving]
  - Drug interaction [Recovered/Resolved]
